FAERS Safety Report 6676196-8 (Version None)
Quarter: 2010Q2

REPORT INFORMATION
  Report Type: 
  Country: None (occurrence: None)
  Receive Date: 20100412
  Receipt Date: 20100331
  Transmission Date: 20101027
  Serious: No
  Sender: FDA-Public Use
  Company Number: US-JNJFOC-20100401015

PATIENT
  Sex: Female
  Weight: 58.06 kg

DRUGS (5)
  1. DURAGESIC-100 [Suspect]
     Indication: INTERVERTEBRAL DISC PROTRUSION
     Dosage: 50 MCG/HR PATCH +12.5 MCG/HR PATCH
     Route: 062
  2. DURAGESIC-100 [Suspect]
     Route: 062
  3. DURAGESIC-100 [Suspect]
     Route: 062
  4. DURAGESIC-100 [Suspect]
     Dosage: 50MCG/HR+12.5MCH/HR
     Route: 062
  5. FIORICET [Concomitant]
     Indication: MIGRAINE
     Route: 048

REACTIONS (15)
  - ADVERSE EVENT [None]
  - APPLICATION SITE DISCOLOURATION [None]
  - APPLICATION SITE PRURITUS [None]
  - CRYING [None]
  - DEPRESSED MOOD [None]
  - DRUG ADMINISTERED AT INAPPROPRIATE SITE [None]
  - DYSGEUSIA [None]
  - FEELING ABNORMAL [None]
  - FEELING JITTERY [None]
  - HYPERHIDROSIS [None]
  - IRRITABILITY [None]
  - NERVOUSNESS [None]
  - PRODUCT QUALITY ISSUE [None]
  - WITHDRAWAL SYNDROME [None]
  - WRONG TECHNIQUE IN DRUG USAGE PROCESS [None]
